FAERS Safety Report 17055614 (Version 2)
Quarter: 2021Q2

REPORT INFORMATION
  Report Type: Report from Study
  Country: US (occurrence: US)
  Receive Date: 20191120
  Receipt Date: 20210621
  Transmission Date: 20210716
  Serious: Yes (Hospitalization)
  Sender: FDA-Public Use
  Company Number: US-JAZZ-JPI-P-032900

PATIENT
  Age: 51 Year
  Sex: Female
  Weight: 88.18 kg

DRUGS (11)
  1. FLUTICASONE PROPIONATE. [Concomitant]
     Active Substance: FLUTICASONE PROPIONATE
     Indication: HYPERSENSITIVITY
  2. BACLOFEN. [Suspect]
     Active Substance: BACLOFEN
     Indication: BRACHIAL PLEXUS INJURY
  3. DIVALPROEX SODIUM. [Concomitant]
     Active Substance: DIVALPROEX SODIUM
     Indication: MIGRAINE
  4. XYREM [Suspect]
     Active Substance: SODIUM OXYBATE
     Dosage: 3 GRAM, BID
     Route: 048
     Dates: end: 20130604
  5. DIVALPROEX SODIUM. [Concomitant]
     Active Substance: DIVALPROEX SODIUM
     Indication: AFFECTIVE DISORDER
  6. QUETIAPINE FUMARATE. [Concomitant]
     Active Substance: QUETIAPINE FUMARATE
     Indication: MIGRAINE
  7. ARIPIPRAZOLE. [Concomitant]
     Active Substance: ARIPIPRAZOLE
     Indication: HALLUCINATION
  8. XYREM [Suspect]
     Active Substance: SODIUM OXYBATE
     Indication: NARCOLEPSY
     Dosage: UNK, UNK, SINGLE
     Route: 048
     Dates: start: 20091106
  9. ESCITALOPRAM OXALATE. [Concomitant]
     Active Substance: ESCITALOPRAM OXALATE
     Indication: DEPRESSION
  10. MODAFINIL. [Concomitant]
     Active Substance: MODAFINIL
     Indication: NARCOLEPSY
  11. QUETIAPINE FUMARATE. [Concomitant]
     Active Substance: QUETIAPINE FUMARATE
     Indication: AFFECTIVE DISORDER

REACTIONS (4)
  - Dehydration [Unknown]
  - Brachial plexus injury [Recovered/Resolved]
  - Hypophagia [Unknown]
  - Intervertebral disc protrusion [Not Recovered/Not Resolved]

NARRATIVE: CASE EVENT DATE: 2013
